FAERS Safety Report 7980352-6 (Version None)
Quarter: 2011Q4

REPORT INFORMATION
  Report Type: 
  Country: None (occurrence: None)
  Receive Date: 20111214
  Receipt Date: 20111206
  Transmission Date: 20120403
  Serious: Yes (Other)
  Sender: FDA-Public Use
  Company Number: JP-CEPHALON-2011001114

PATIENT
  Sex: Female
  Weight: 57 kg

DRUGS (9)
  1. ACYCLOVIR [Suspect]
     Indication: PROPHYLAXIS
  2. SULFAMETHOXAZOLE AND TRIMETHOPRIM [Concomitant]
  3. MAGNESIUM OXIDE [Concomitant]
  4. BENDAMUSTINE HCL [Suspect]
     Route: 042
     Dates: start: 20110126, end: 20110127
  5. BENDAMUSTINE HCL [Suspect]
     Indication: MANTLE CELL LYMPHOMA
     Route: 042
     Dates: start: 20110105, end: 20110106
  6. FLUCONAZOLE [Suspect]
     Indication: PROPHYLAXIS
     Route: 048
     Dates: start: 20110105
  7. REBAMIPIDE [Concomitant]
     Dates: start: 20110113
  8. APREPITANT [Concomitant]
     Dates: start: 20110105, end: 20110108
  9. SENNOSIDE [Concomitant]

REACTIONS (6)
  - HYPERAMYLASAEMIA [None]
  - PLATELET COUNT DECREASED [None]
  - LYMPHOCYTE COUNT DECREASED [None]
  - WHITE BLOOD CELL COUNT DECREASED [None]
  - PHLEBITIS [None]
  - ANAEMIA [None]
